FAERS Safety Report 11983202 (Version 9)
Quarter: 2016Q3

REPORT INFORMATION
  Report Type: Report from Study
  Country: DE (occurrence: DE)
  Receive Date: 20160201
  Receipt Date: 20160802
  Transmission Date: 20161109
  Serious: Yes (Hospitalization, Other)
  Sender: FDA-Public Use
  Company Number: PHHY2016DE008709

PATIENT
  Sex: Male
  Weight: 67 kg

DRUGS (6)
  1. RAMIPRIL. [Concomitant]
     Active Substance: RAMIPRIL
     Indication: HYPERTENSION
     Dosage: 1 DF, QD
     Route: 048
  2. OCTREOTID HAMELN [Concomitant]
     Indication: NEUROENDOCRINE TUMOUR
     Dosage: 150 UG, QD
     Route: 058
     Dates: start: 20151204
  3. ALDACTONE [Concomitant]
     Active Substance: SPIRONOLACTONE
     Indication: OEDEMA
     Dosage: 25 MG, QD
     Route: 048
  4. CARVEDILOL. [Concomitant]
     Active Substance: CARVEDILOL
     Indication: HYPERTENSION
     Dosage: 12.5 MG, QD
     Route: 048
  5. SANDOSTATIN LAR DEPOT [Suspect]
     Active Substance: OCTREOTIDE ACETATE
     Indication: NEUROENDOCRINE TUMOUR
     Dosage: 30 MG, QMO (EVERY 28 DAYS)
     Route: 030
     Dates: start: 20150618
  6. HCT [Concomitant]
     Active Substance: HYDROCHLOROTHIAZIDE
     Indication: CARDIAC FAILURE
     Dosage: 1 DF, QD
     Route: 048

REACTIONS (9)
  - Pulmonary valve incompetence [Unknown]
  - Fibrosis [Unknown]
  - Pneumothorax [Recovering/Resolving]
  - Pleural effusion [Recovering/Resolving]
  - Inappropriate schedule of drug administration [Not Recovered/Not Resolved]
  - Lung disorder [Recovering/Resolving]
  - Cardiac failure [Unknown]
  - Tricuspid valve incompetence [Unknown]
  - Fluid retention [Unknown]

NARRATIVE: CASE EVENT DATE: 20160121
